FAERS Safety Report 7201807-8 (Version None)
Quarter: 2010Q4

REPORT INFORMATION
  Report Type: 
  Country: None (occurrence: None)
  Receive Date: 20101229
  Receipt Date: 20100903
  Transmission Date: 20110411
  Serious: Yes (Hospitalization, Disabling, Other)
  Sender: FDA-Public Use
  Company Number: US-BAYER-200937101NA

PATIENT
  Sex: Female
  Weight: 54.545 kg

DRUGS (5)
  1. YASMIN [Suspect]
     Dates: start: 20040226, end: 20071216
  2. MOTRIN [Concomitant]
     Dates: start: 20071120, end: 20071120
  3. MOTRIN [Concomitant]
     Dates: start: 20071130, end: 20071130
  4. MOTRIN [Concomitant]
     Dates: start: 20071214, end: 20071214
  5. SODIUM CHLORIDE [Concomitant]

REACTIONS (11)
  - APHASIA [None]
  - BRAIN OEDEMA [None]
  - CEREBRAL HAEMATOMA [None]
  - CEREBRAL INFARCTION [None]
  - CONVULSION [None]
  - DIZZINESS [None]
  - FACIAL PARESIS [None]
  - HEADACHE [None]
  - HEMIPARESIS [None]
  - SUPERIOR SAGITTAL SINUS THROMBOSIS [None]
  - URINARY TRACT INFECTION [None]
